FAERS Safety Report 6489631-5 (Version None)
Quarter: 2009Q4

REPORT INFORMATION
  Report Type: 
  Country: None (occurrence: None)
  Receive Date: 20091210
  Receipt Date: 20091127
  Transmission Date: 20100525
  Serious: Yes (Death)
  Sender: FDA-Public Use
  Company Number: US-GENENTECH-295556

PATIENT
  Age: 60 Year
  Sex: Male

DRUGS (5)
  1. RITUXIMAB [Suspect]
     Indication: DIFFUSE LARGE B-CELL LYMPHOMA RECURRENT
     Dosage: TAKEN SYSTEMICALLY
     Route: 065
  2. METHOTREXATE [Suspect]
     Dosage: TAKEN SYSTEMICALLY AND INTRATHECALLY
     Route: 050
  3. CYTARABINE [Suspect]
     Dosage: TAKEN SYSTEMICALLY
     Route: 065
  4. VINCRISTINE [Suspect]
     Dosage: TAKEN SYSTEMICALLY
     Route: 065
  5. DEXAMETHASONE TAB [Suspect]
     Dosage: TAKEN SYSTEMICALLY
     Route: 065

REACTIONS (9)
  - CELLULITIS [None]
  - ECTHYMA [None]
  - ENTEROCOCCAL SEPSIS [None]
  - GANGRENE [None]
  - NEUTROPENIA [None]
  - PNEUMONIA [None]
  - PSEUDOMONAS INFECTION [None]
  - SEPSIS [None]
  - STAPHYLOCOCCAL SEPSIS [None]
